FAERS Safety Report 5786032-X (Version None)
Quarter: 2008Q2

REPORT INFORMATION
  Report Type: 
  Country: None (occurrence: None)
  Receive Date: 20080624
  Receipt Date: 20070604
  Transmission Date: 20081010
  Serious: No
  Sender: FDA-Public Use
  Company Number: US-ASTRAZENECA-2007UW13431

PATIENT
  Age: 2 Month
  Sex: Male

DRUGS (2)
  1. PULMICORT RESPULES [Suspect]
     Indication: RESPIRATORY SYNCYTIAL VIRUS INFECTION
     Dosage: 0.25 MG BID
     Route: 055
     Dates: start: 20070401, end: 20070501
  2. XOPENEX [Concomitant]

REACTIONS (2)
  - POSTURE ABNORMAL [None]
  - TONGUE DISORDER [None]
